FAERS Safety Report 8537526 (Version 3)
Quarter: 2013Q2

REPORT INFORMATION
  Report Type: Spontaneous
  Country: GB (occurrence: GB)
  Receive Date: 20120501
  Receipt Date: 20130422
  Transmission Date: 20140414
  Serious: Yes (Other)
  Sender: FDA-Public Use
  Company Number: GB-NOVOPROD-350021

PATIENT
  Age: 69 Year
  Sex: Male
  Weight: 99 kg

DRUGS (10)
  1. VICTOZA [Suspect]
     Indication: TYPE 2 DIABETES MELLITUS
     Dosage: 0.6 MG, QD
     Route: 065
     Dates: start: 201111, end: 20120127
  2. METFORMIN [Concomitant]
     Indication: PRODUCT USED FOR UNKNOWN INDICATION
     Dosage: 2 G, QD
  3. SITAGLIPTIN [Concomitant]
     Indication: PRODUCT USED FOR UNKNOWN INDICATION
     Dosage: 100 MG, QD
  4. ASPIRIN [Concomitant]
     Dosage: 75 MG, QD
  5. ATORVASTATIN [Concomitant]
     Dosage: 10 MG, QD
  6. PERINDOPRIL [Concomitant]
     Dosage: 5 MG, QD
  7. INDAPAMIDE [Concomitant]
     Dosage: 1.25 MG, QD
  8. LIPITOR [Concomitant]
     Dosage: QEQ
  9. BECONASE AQ [Concomitant]
     Dosage: 2 %
  10. KETOCONAZOLE [Concomitant]

REACTIONS (5)
  - Loss of consciousness [Recovered/Resolved]
  - Dizziness [Recovered/Resolved]
  - Weight decreased [Unknown]
  - Decreased appetite [Unknown]
  - Constipation [Recovered/Resolved]
